FAERS Safety Report 24124030 (Version 2)
Quarter: 2024Q3

REPORT INFORMATION
  Report Type: Spontaneous
  Country: US (occurrence: US)
  Receive Date: 20240723
  Receipt Date: 20240924
  Transmission Date: 20241016
  Serious: No
  Sender: FDC LIMITED
  Company Number: US-FDC-2024USSPO00529

PATIENT
  Sex: Female

DRUGS (1)
  1. OFLOXACIN [Suspect]
     Active Substance: OFLOXACIN
     Indication: Product used for unknown indication
     Route: 047

REACTIONS (3)
  - Illness [Unknown]
  - Dizziness [Unknown]
  - Nausea [Unknown]
